FAERS Safety Report 5745040-5 (Version None)
Quarter: 2008Q2

REPORT INFORMATION
  Report Type: 
  Country: None (occurrence: None)
  Receive Date: 20080521
  Receipt Date: 20080516
  Transmission Date: 20081010
  Serious: Yes (Life-Threatening, Hospitalization, Other)
  Sender: FDA-Public Use
  Company Number: CH-BAYER-200818463GPV

PATIENT
  Age: 78 Year
  Sex: Male
  Weight: 90 kg

DRUGS (8)
  1. AVELOX [Suspect]
     Indication: CYSTITIS
     Route: 065
     Dates: start: 20080402, end: 20080406
  2. CIPROFLOXACIN HCL [Suspect]
     Indication: CYSTITIS
     Route: 065
     Dates: start: 20080328, end: 20080402
  3. METFORMIN HCL [Concomitant]
     Indication: DIABETES MELLITUS
     Dosage: TOTAL DAILY DOSE: 850 MG
     Route: 065
  4. DIAMICRON [Concomitant]
     Indication: DIABETES MELLITUS
     Dosage: TOTAL DAILY DOSE: 30 MG
     Route: 065
  5. SIMVASTATIN [Concomitant]
     Indication: HYPERLIPIDAEMIA
     Dosage: TOTAL DAILY DOSE: 40 MG
     Route: 065
  6. CORANGIN [Concomitant]
     Indication: DRUG USE FOR UNKNOWN INDICATION
     Route: 065
  7. BISOPROLOL FUMARATE [Concomitant]
     Indication: ARTERIOSCLEROSIS CORONARY ARTERY
     Dosage: TOTAL DAILY DOSE: 10 MG
     Route: 065
  8. PLAVIX [Concomitant]
     Indication: DRUG USE FOR UNKNOWN INDICATION
     Dosage: TOTAL DAILY DOSE: 75 MG
     Route: 065

REACTIONS (4)
  - BLOOD SODIUM DECREASED [None]
  - BRADYCARDIA [None]
  - CONVULSION [None]
  - SYNCOPE [None]
